FAERS Safety Report 8306970-3 (Version None)
Quarter: 2012Q2

REPORT INFORMATION
  Report Type: 
  Country: None (occurrence: None)
  Receive Date: 20120420
  Receipt Date: 20120416
  Transmission Date: 20120825
  Serious: Yes (Hospitalization, Other)
  Sender: FDA-Public Use
  Company Number: 2011SP025675

PATIENT
  Age: 47 Year
  Sex: Female
  Weight: 77.1115 kg

DRUGS (3)
  1. NUVARING [Suspect]
     Indication: CONTRACEPTION
     Dates: start: 20081001, end: 20090619
  2. NUVARING [Suspect]
     Indication: MENSTRUAL CYCLE MANAGEMENT
     Dates: start: 20081001, end: 20090619
  3. NUVARING [Suspect]
     Indication: UTERINE HAEMORRHAGE
     Dates: start: 20081001, end: 20090619

REACTIONS (25)
  - ACUTE RESPIRATORY FAILURE [None]
  - METRORRHAGIA [None]
  - PULMONARY INFARCTION [None]
  - COSTOCHONDRITIS [None]
  - CARPAL TUNNEL SYNDROME [None]
  - FIBROMYALGIA [None]
  - NEUROPATHY PERIPHERAL [None]
  - OEDEMA PERIPHERAL [None]
  - LUNG INFILTRATION [None]
  - IMPAIRED WORK ABILITY [None]
  - MIGRAINE [None]
  - PAIN IN EXTREMITY [None]
  - PAIN [None]
  - MENTAL DISORDER [None]
  - INTERSTITIAL LUNG DISEASE [None]
  - PULMONARY EMBOLISM [None]
  - INJURY [None]
  - RESPIRATORY ALKALOSIS [None]
  - DEEP VEIN THROMBOSIS [None]
  - MUSCULAR WEAKNESS [None]
  - PULMONARY GRANULOMA [None]
  - SPIDER VEIN [None]
  - ASTHMA [None]
  - COGNITIVE DISORDER [None]
  - EMOTIONAL DISORDER [None]
